FAERS Safety Report 7285755-3 (Version None)
Quarter: 2011Q1

REPORT INFORMATION
  Report Type: 
  Country: None (occurrence: None)
  Receive Date: 20110124
  Receipt Date: 20110110
  Transmission Date: 20110831
  Serious: Yes (Other)
  Sender: FDA-Public Use
  Company Number: WSDF_00713

PATIENT
  Sex: Female
  Weight: 131.7699 kg

DRUGS (3)
  1. PRENATAL VITAMINS [Concomitant]
  2. WINRHO SDF LIQUID [Suspect]
     Indication: IDIOPATHIC THROMBOCYTOPENIC PURPURA
     Dosage: (30.3 UG/KG TOTAL INTRAVENOUS (NOT OTHERWISE SPECIFIED))
     Route: 042
     Dates: start: 20080209, end: 20080209
  3. PREDNISONE [Concomitant]

REACTIONS (9)
  - CHEST DISCOMFORT [None]
  - ANXIETY [None]
  - HEADACHE [None]
  - INFUSION RELATED REACTION [None]
  - BACK PAIN [None]
  - DRUG EXPOSURE DURING PREGNANCY [None]
  - BLOOD PRESSURE INCREASED [None]
  - NECK PAIN [None]
  - PROLONGED PREGNANCY [None]
